FAERS Safety Report 24781314 (Version 1)
Quarter: 2024Q4

REPORT INFORMATION
  Report Type: Spontaneous
  Country: PT (occurrence: PT)
  Receive Date: 20241227
  Receipt Date: 20241227
  Transmission Date: 20250115
  Serious: Yes (Hospitalization)
  Sender: STRIDES
  Company Number: PT-STRIDES ARCOLAB LIMITED-2024SP017020

PATIENT
  Age: 70 Year
  Sex: Female

DRUGS (1)
  1. METHOTREXATE [Suspect]
     Active Substance: METHOTREXATE
     Indication: Neurodermatitis
     Dosage: 10 MILLIGRAM, QD (FOR AN ENTIRE WEEK)
     Route: 065

REACTIONS (8)
  - Inappropriate schedule of product administration [Unknown]
  - Stomatitis [Recovered/Resolved]
  - Myelosuppression [Recovered/Resolved]
  - Renal impairment [Recovered/Resolved]
  - Alopecia [Recovered/Resolved]
  - Toxicity to various agents [Recovered/Resolved]
  - Acute kidney injury [Unknown]
  - Off label use [Unknown]
